FAERS Safety Report 22652485 (Version 1)
Quarter: 2023Q2

REPORT INFORMATION
  Report Type: Spontaneous
  Country: JP (occurrence: JP)
  Receive Date: 20230629
  Receipt Date: 20230629
  Transmission Date: 20230722
  Serious: Yes (Life-Threatening, Hospitalization, Other)
  Sender: FDA-Public Use
  Company Number: JP-JNJFOC-20230654910

PATIENT
  Age: 90 Year
  Sex: Male

DRUGS (2)
  1. RISPERDAL [Suspect]
     Active Substance: RISPERIDONE
     Indication: Sedation
     Route: 048
  2. LAXSORONE [Concomitant]
     Dosage: DOSE UNKNOWN
     Route: 048

REACTIONS (18)
  - Cardiac failure [Recovered/Resolved]
  - Bradycardia [Recovering/Resolving]
  - Arrhythmia [Recovering/Resolving]
  - Loss of consciousness [Recovering/Resolving]
  - Rhabdomyolysis [Recovered/Resolved]
  - Neuroleptic malignant syndrome [Recovered/Resolved]
  - Adverse reaction [Unknown]
  - Weight decreased [Recovering/Resolving]
  - Blood pressure decreased [Recovered/Resolved]
  - Constipation [Recovering/Resolving]
  - Decreased appetite [Recovered/Resolved]
  - Urinary incontinence [Recovering/Resolving]
  - Chromaturia [Recovering/Resolving]
  - Dyskinesia [Recovered/Resolved]
  - Akathisia [Recovering/Resolving]
  - Hypoglycaemia [Recovering/Resolving]
  - White blood cell count increased [Recovering/Resolving]
  - Off label use [Unknown]
